FAERS Safety Report 16203943 (Version 3)
Quarter: 2019Q2

REPORT INFORMATION
  Report Type: Report from Study
  Country: CA (occurrence: CA)
  Receive Date: 20190416
  Receipt Date: 20190517
  Transmission Date: 20190711
  Serious: Yes (Hospitalization, Other)
  Sender: FDA-Public Use
  Company Number: CA-JNJFOC-20190338435

PATIENT
  Age: 82 Year
  Sex: Male
  Weight: 61.5 kg

DRUGS (1)
  1. SIMPONI [Suspect]
     Active Substance: GOLIMUMAB
     Indication: COLITIS ULCERATIVE
     Dosage: STRENGTH = 100 MG
     Route: 058

REACTIONS (6)
  - Pneumonia [Recovering/Resolving]
  - Hypoaesthesia [Unknown]
  - Upper respiratory tract infection [Recovering/Resolving]
  - Diarrhoea [Recovering/Resolving]
  - Psychomotor hyperactivity [Unknown]
  - Sensory loss [Unknown]

NARRATIVE: CASE EVENT DATE: 20190324
